FAERS Safety Report 5921023-7 (Version None)
Quarter: 2008Q4

REPORT INFORMATION
  Report Type: 
  Country: None (occurrence: None)
  Receive Date: 20081016
  Receipt Date: 20081009
  Transmission Date: 20090506
  Serious: Yes (Other)
  Sender: FDA-Public Use
  Company Number: GB-NOVOPROD-276579

PATIENT
  Age: 77 Year
  Sex: Male

DRUGS (2)
  1. NOVORAPID [Suspect]
     Indication: DIABETES MELLITUS
     Dates: start: 20080301, end: 20080301
  2. PROCHLORPERAZINE [Concomitant]
     Dosage: 5 MG, TID
     Route: 058
     Dates: start: 20080228

REACTIONS (3)
  - BLOOD GLUCOSE INCREASED [None]
  - DIZZINESS [None]
  - DRUG INEFFECTIVE [None]
